FAERS Safety Report 7570774-X (Version None)
Quarter: 2011Q2

REPORT INFORMATION
  Report Type: 
  Country: None (occurrence: None)
  Receive Date: 20110622
  Receipt Date: 20110622
  Transmission Date: 20111010
  Serious: Yes (Other)
  Sender: FDA-Public Use
  Company Number: None

PATIENT
  Age: 63 Year
  Sex: Female
  Weight: 58.514 kg

DRUGS (1)
  1. MESALAMINE [Suspect]
     Indication: CROHN'S DISEASE
     Dosage: 400 MG 2 TWICE A DAY

REACTIONS (5)
  - MALAISE [None]
  - UNEVALUABLE EVENT [None]
  - ABDOMINAL DISTENSION [None]
  - PRODUCT SUBSTITUTION ISSUE [None]
  - HEADACHE [None]
